FAERS Safety Report 8377440-1 (Version None)
Quarter: 2012Q2

REPORT INFORMATION
  Report Type: 
  Country: None (occurrence: None)
  Receive Date: 20120522
  Receipt Date: 20110825
  Transmission Date: 20120825
  Serious: No
  Sender: FDA-Public Use
  Company Number: US-ASTRAZENECA-2011SE51483

PATIENT

DRUGS (18)
  1. OMEPRAZOLE [Suspect]
     Route: 048
     Dates: start: 20110115
  2. AMLODIPINE BESYLATE [Concomitant]
     Route: 048
     Dates: start: 20110526
  3. SYMBICORT [Suspect]
     Route: 055
     Dates: start: 20110628
  4. PROAIR HFA [Concomitant]
     Indication: ASTHMA
     Dosage: 90 MCG TWO PUFFS EVERY FOUR HOURS
     Route: 048
     Dates: start: 20110810
  5. PROAIR HFA [Concomitant]
     Dosage: 90 MCG TWO PUFFS EVERY FOUR HOURS
     Route: 048
     Dates: start: 20110529
  6. PROAIR HFA [Concomitant]
     Dosage: 90 MCG TWO PUFFS EVERY FOUR HOURS
     Route: 048
     Dates: start: 20110218
  7. QVAR 40 [Concomitant]
     Dosage: 80 MCG INHALE TWO PUFFS TWICE A DAY, RINSE MOUTH AFTER USE
     Route: 048
     Dates: start: 20110526
  8. PROAIR HFA [Concomitant]
     Dosage: 90 MCG TWO PUFFS EVERY FOUR HOURS
     Route: 048
     Dates: start: 20110529
  9. PROAIR HFA [Concomitant]
     Dosage: 90 MCG TWO PUFFS EVERY FOUR HOURS
     Route: 048
     Dates: start: 20110506
  10. PROAIR HFA [Concomitant]
     Dosage: 90 MCG TWO PUFFS EVERY FOUR HOURS
     Route: 055
     Dates: start: 20110709
  11. PROAIR HFA [Concomitant]
     Dosage: 90 MCG TWO PUFFS EVERY FOUR HOURS
     Route: 055
     Dates: start: 20110709
  12. PROAIR HFA [Concomitant]
     Dosage: 90 MCG TWO PUFFS EVERY FOUR HOURS
     Route: 048
     Dates: start: 20110506
  13. OMEPRAZOLE [Suspect]
     Route: 048
     Dates: start: 20110525
  14. OMEPRAZOLE [Suspect]
     Route: 048
     Dates: start: 20110218
  15. PROAIR HFA [Concomitant]
     Indication: WHEEZING
     Dosage: 90 MCG TWO PUFFS EVERY FOUR HOURS
     Route: 048
     Dates: start: 20110810
  16. PROAIR HFA [Concomitant]
     Dosage: 90 MCG TWO PUFFS EVERY FOUR HOURS
     Route: 048
     Dates: start: 20110218
  17. NITROFURANTOIN [Concomitant]
     Route: 048
     Dates: start: 20110527
  18. BUPROPION HYDROCHLORIDE [Concomitant]
     Route: 048
     Dates: start: 20110218

REACTIONS (1)
  - ASTHMA [None]
